FAERS Safety Report 16418063 (Version 5)
Quarter: 2019Q3

REPORT INFORMATION
  Report Type: Report from Study
  Country: JP (occurrence: JP)
  Receive Date: 20190611
  Receipt Date: 20190917
  Transmission Date: 20191004
  Serious: Yes (Death, Hospitalization, Other)
  Sender: FDA-Public Use
  Company Number: PHJP2018JP016653

PATIENT
  Age: 67 Year
  Sex: Female

DRUGS (16)
  1. FARYDAK [Suspect]
     Active Substance: PANOBINOSTAT
     Indication: PLASMA CELL MYELOMA
     Dosage: 10 MG, QD
     Route: 048
     Dates: start: 20160524, end: 20160704
  2. LOXOPROFEN [Concomitant]
     Active Substance: LOXOPROFEN
     Indication: SCIATICA
  3. DEXAMETHASONE. [Suspect]
     Active Substance: DEXAMETHASONE
     Indication: PLASMA CELL MYELOMA
     Dosage: UNK
     Route: 065
     Dates: start: 20160524, end: 20160704
  4. NEXIUM [Concomitant]
     Active Substance: ESOMEPRAZOLE MAGNESIUM
     Indication: PROPHYLAXIS
     Dosage: 20 MG, UNK
     Route: 048
  5. LYRICA [Concomitant]
     Active Substance: PREGABALIN
     Indication: SCIATICA
     Dosage: 50 MG, UNK
     Route: 048
     Dates: start: 20160709, end: 20160712
  6. SERENACE [Concomitant]
     Active Substance: HALOPERIDOL
     Indication: PLASMA CELL MYELOMA
     Dosage: 5 MG, UNK
     Route: 065
     Dates: start: 20160704, end: 20160704
  7. FENTOS [Concomitant]
     Active Substance: FENTANYL
     Indication: PLASMA CELL MYELOMA
     Dosage: 4 MG, UNK
     Route: 061
     Dates: end: 20160525
  8. SERENACE [Concomitant]
     Active Substance: HALOPERIDOL
     Indication: SCIATICA
  9. MAGMITT [Concomitant]
     Active Substance: MAGNESIUM OXIDE
     Indication: CONSTIPATION
     Dosage: 1980 MG, UNK
     Route: 048
  10. LYRICA [Concomitant]
     Active Substance: PREGABALIN
     Indication: PLASMA CELL MYELOMA
     Dosage: 150 MG, UNK
     Route: 048
     Dates: start: 20160704, end: 20160708
  11. DEXAMETHASONE. [Suspect]
     Active Substance: DEXAMETHASONE
     Indication: CEREBRAL HAEMORRHAGE
  12. ASTRIC [Concomitant]
     Active Substance: ACYCLOVIR
     Indication: PROPHYLAXIS
     Dosage: 200 MG, UNK
     Route: 048
  13. FENTOS [Concomitant]
     Active Substance: FENTANYL
     Dosage: 3 MG, UNK
     Route: 061
     Dates: start: 20160526
  14. LOXOPROFEN [Concomitant]
     Active Substance: LOXOPROFEN
     Indication: PLASMA CELL MYELOMA
     Dosage: 180 MG, UNK
     Route: 048
     Dates: start: 20160704
  15. BORTEZOMIB. [Suspect]
     Active Substance: BORTEZOMIB
     Indication: PLASMA CELL MYELOMA
     Dosage: 1.3 MG/M2, QW
     Route: 058
     Dates: start: 20160524, end: 20160704
  16. SENNOSIDE [Concomitant]
     Active Substance: SENNOSIDES
     Indication: CONSTIPATION
     Dosage: 24 MG, UNK
     Route: 048

REACTIONS (9)
  - Cerebral haemorrhage [Fatal]
  - Anaemia [Not Recovered/Not Resolved]
  - Platelet count decreased [Not Recovered/Not Resolved]
  - Aspartate aminotransferase increased [Unknown]
  - Hepatic function abnormal [Recovered/Resolved]
  - Hypercalcaemia [Recovering/Resolving]
  - Alanine aminotransferase increased [Unknown]
  - White blood cell count decreased [Not Recovered/Not Resolved]
  - Renal impairment [Recovered/Resolved]

NARRATIVE: CASE EVENT DATE: 20160527
